FAERS Safety Report 10064512 (Version 1)
Quarter: 2014Q2

REPORT INFORMATION
  Report Type: Spontaneous
  Country: ES (occurrence: ES)
  Receive Date: 20140408
  Receipt Date: 20140408
  Transmission Date: 20141212
  Serious: Yes (Hospitalization)
  Sender: FDA-Public Use
  Company Number: ES-MYLANLABS-2014S1007041

PATIENT
  Age: 67 Year
  Sex: Male

DRUGS (2)
  1. AMIODARONE [Suspect]
     Indication: ATRIAL FLUTTER
     Route: 042
  2. AMIODARONE [Suspect]
     Indication: OFF LABEL USE
     Route: 042

REACTIONS (2)
  - Ventricular fibrillation [Recovered/Resolved]
  - Electrocardiogram QT prolonged [Recovered/Resolved]
